FAERS Safety Report 6193089-3 (Version None)
Quarter: 2009Q2

REPORT INFORMATION
  Report Type: 
  Country: None (occurrence: None)
  Receive Date: 20090518
  Receipt Date: 20090511
  Transmission Date: 20091009
  Serious: Yes (Other)
  Sender: FDA-Public Use
  Company Number: US-B.I. PHARMACEUTICALS,INC./RIDGEFIELD-2009-BP-05879BP

PATIENT
  Age: 80 Year
  Sex: Male

DRUGS (1)
  1. FLOMAX [Suspect]
     Route: 048

REACTIONS (2)
  - FALL [None]
  - SYNCOPE [None]
